FAERS Safety Report 15138123 (Version 1)
Quarter: 2018Q3

REPORT INFORMATION
  Report Type: Other
  Country: FR (occurrence: FR)
  Receive Date: 20180713
  Receipt Date: 20180713
  Transmission Date: 20181010
  Serious: Yes (Life-Threatening)
  Sender: FDA-Public Use
  Company Number: FR-DENTSPLY-2018SCDP000286

PATIENT
  Age: 37 Year
  Sex: Female
  Weight: 100 kg

DRUGS (4)
  1. LEVOBUPIVACAINE HYDROCHLORIDE [Suspect]
     Active Substance: LEVOBUPIVACAINE HYDROCHLORIDE
     Indication: EPIDURAL ANAESTHESIA
     Dosage: UNK
     Route: 042
     Dates: start: 20180618, end: 20180618
  2. LIDOCAINE HYDROCHLORIDE AND EPINEPHRINE BITARTRATE [Suspect]
     Active Substance: EPINEPHRINE BITARTRATE\LIDOCAINE HYDROCHLORIDE
     Indication: EPIDURAL ANAESTHESIA
     Dosage: LIDOCAINE 2%, 3 ML
     Route: 042
     Dates: start: 20180618, end: 20180618
  3. SUFENTANIL [Suspect]
     Active Substance: SUFENTANIL
     Indication: EPIDURAL ANAESTHESIA
     Dosage: UNK
     Route: 042
     Dates: start: 20180618, end: 20180618
  4. SYNTOCINON [Suspect]
     Active Substance: OXYTOCIN
     Indication: LABOUR INDUCTION
     Dosage: UNK
     Route: 042
     Dates: start: 20180618, end: 20180618

REACTIONS (2)
  - Anaemia [None]
  - Third stage postpartum haemorrhage [Recovered/Resolved]

NARRATIVE: CASE EVENT DATE: 20180618
